FAERS Safety Report 5680601-3 (Version None)
Quarter: 2008Q1

REPORT INFORMATION
  Report Type: 
  Country: None (occurrence: None)
  Receive Date: 20080326
  Receipt Date: 20080317
  Transmission Date: 20080703
  Serious: Yes (Other)
  Sender: FDA-Public Use
  Company Number: GB-ABBOTT-08P-167-0443431-00

PATIENT
  Sex: Female

DRUGS (4)
  1. VALPROATE SODIUM [Suspect]
     Indication: DRUG USE FOR UNKNOWN INDICATION
     Route: 048
     Dates: start: 20080115, end: 20080301
  2. TRETINOIN [Concomitant]
     Indication: LEUKAEMIA
     Route: 048
  3. THEOPHYLLINE [Concomitant]
     Indication: LEUKAEMIA
     Route: 048
  4. FUROSEMIDE [Concomitant]
     Indication: OEDEMA
     Route: 048

REACTIONS (1)
  - PERFORATED ULCER [None]
